FAERS Safety Report 14376033 (Version 6)
Quarter: 2018Q2

REPORT INFORMATION
  Report Type: Spontaneous
  Country: CA (occurrence: CA)
  Receive Date: 20180111
  Receipt Date: 20180417
  Transmission Date: 20180711
  Serious: Yes (Other)
  Sender: FDA-Public Use
  Company Number: CA-CELLTRION INC.-2017CA011909

PATIENT

DRUGS (7)
  1. METHOTREXATE. [Concomitant]
     Active Substance: METHOTREXATE
     Dosage: 25 MG, 1/WEEK
     Route: 065
  2. INFLECTRA [Suspect]
     Active Substance: INFLIXIMAB-DYYB
     Dosage: 200 MG, CYCLIC (EVERY 6 WEEKS)
     Route: 042
     Dates: start: 20180329, end: 20180329
  3. INFLECTRA [Suspect]
     Active Substance: INFLIXIMAB-DYYB
     Indication: ANKYLOSING SPONDYLITIS
     Dosage: 200 MG, CYCLIC (EVERY 6 WEEKS)
     Route: 042
     Dates: start: 20170601
  4. ACETAMINOPHEN. [Concomitant]
     Active Substance: ACETAMINOPHEN
     Dosage: 1 G
     Route: 048
  5. INFLECTRA [Suspect]
     Active Substance: INFLIXIMAB-DYYB
     Dosage: 200 MG, CYCLIC  (EVERY 6 WEEKS)
     Route: 042
     Dates: start: 20180215
  6. INFLECTRA [Suspect]
     Active Substance: INFLIXIMAB-DYYB
     Dosage: 200 MG, CYCLIC (EVERY 6 WEEKS)
     Route: 042
     Dates: start: 20180104
  7. CELEBREX [Concomitant]
     Active Substance: CELECOXIB
     Dosage: UNK, PRN
     Route: 065

REACTIONS (8)
  - Skin disorder [Unknown]
  - Drug effect decreased [Unknown]
  - Incorrect drug administration duration [Unknown]
  - Product use issue [Unknown]
  - Uveitis [Recovered/Resolved]
  - Sinusitis [Unknown]
  - Skin burning sensation [Unknown]
  - Bronchitis [Unknown]

NARRATIVE: CASE EVENT DATE: 20170601
